FAERS Safety Report 9423713 (Version 3)
Quarter: 2013Q4

REPORT INFORMATION
  Report Type: Spontaneous
  Country: FR (occurrence: FR)
  Receive Date: 20130727
  Receipt Date: 20131011
  Transmission Date: 20140711
  Serious: Yes (Hospitalization, Other)
  Sender: FDA-Public Use
  Company Number: FR-009507513-1307FRA010785

PATIENT
  Sex: Female

DRUGS (8)
  1. ISENTRESS [Suspect]
     Indication: HIV INFECTION
     Dosage: 800 MG, QD
     Route: 064
     Dates: start: 20130506, end: 20130624
  2. TRUVADA [Concomitant]
     Indication: HIV INFECTION
     Dosage: 1 DF, QD
     Route: 064
     Dates: start: 20110114, end: 20121105
  3. PREZISTA [Concomitant]
     Indication: HIV INFECTION
     Dosage: 800 MG, QD
     Route: 064
     Dates: start: 20110114, end: 20130114
  4. NORVIR [Concomitant]
     Indication: HIV INFECTION
     Dosage: 100 MG, QD
     Route: 064
     Dates: start: 20110114, end: 20130114
  5. KIVEXA [Concomitant]
     Indication: HIV INFECTION
     Dosage: 1 DF, QD
     Route: 064
     Dates: start: 20121105, end: 20130624
  6. KALETRA [Concomitant]
     Indication: HIV INFECTION
     Dosage: 800 MG, QD
     Route: 064
     Dates: start: 20130114, end: 20130624
  7. TARDYFERON [Concomitant]
     Indication: ANAEMIA
     Dosage: 80 MG, QD
     Route: 064
     Dates: start: 20121210, end: 20130618
  8. ZIDOVUDINE [Concomitant]

REACTIONS (11)
  - Foetal arrhythmia [Recovering/Resolving]
  - Apparent death [Recovering/Resolving]
  - Hypoxic-ischaemic encephalopathy [Recovering/Resolving]
  - Exposure via inhalation [Recovering/Resolving]
  - Pulmonary arterial hypertension [Recovering/Resolving]
  - Infection [Recovering/Resolving]
  - Cough [Recovering/Resolving]
  - Thrombocytopenia [Recovering/Resolving]
  - Anaemia [Unknown]
  - Neutropenia [Unknown]
  - Foetal exposure during pregnancy [Unknown]
